FAERS Safety Report 23626257 (Version 2)
Quarter: 2024Q3

REPORT INFORMATION
  Report Type: Report from Study
  Country: CA (occurrence: CA)
  Receive Date: 20240313
  Receipt Date: 20240718
  Transmission Date: 20241017
  Serious: Yes (Hospitalization, Other)
  Sender: BOEHRINGER INGELHEIM
  Company Number: CA-BoehringerIngelheim-2022-BI-200947

PATIENT
  Age: 74 Year
  Sex: Male

DRUGS (1)
  1. OFEV [Suspect]
     Active Substance: NINTEDANIB
     Indication: Idiopathic pulmonary fibrosis
     Route: 048
     Dates: start: 20220901

REACTIONS (10)
  - Gallbladder disorder [Recovered/Resolved]
  - Dyspnoea [Recovering/Resolving]
  - Hernia [Unknown]
  - Dyspnoea exertional [Not Recovered/Not Resolved]
  - Weight decreased [Unknown]
  - Parkinson^s disease [Unknown]
  - Constipation [Unknown]
  - Oxygen saturation decreased [Not Recovered/Not Resolved]
  - Decreased appetite [Recovering/Resolving]
  - Humidity intolerance [Unknown]
